FAERS Safety Report 5554756-5 (Version None)
Quarter: 2007Q4

REPORT INFORMATION
  Report Type: 
  Country: None (occurrence: None)
  Receive Date: 20071213
  Receipt Date: 20071205
  Transmission Date: 20080405
  Serious: Yes (Death, Life-Threatening, Hospitalization)
  Sender: FDA-Public Use
  Company Number: FR-WYE-H01575207

PATIENT
  Sex: Male

DRUGS (12)
  1. CORDARONE [Suspect]
     Indication: ATRIAL FIBRILLATION
     Route: 048
     Dates: end: 20060721
  2. CIFLOX [Interacting]
     Indication: URINARY TRACT INFECTION
     Dosage: UNKNOWN
     Route: 048
     Dates: start: 20060627, end: 20060713
  3. CONTRAMAL [Interacting]
     Dosage: UNKNOWN
     Route: 048
     Dates: start: 20060624, end: 20070721
  4. INSULATARD [Concomitant]
     Dosage: UNKNOWN
     Route: 058
  5. BRICANYL [Concomitant]
     Dosage: UNKNOWN
     Route: 055
  6. ESIDRIX [Concomitant]
     Dosage: UNKNOWN
     Route: 048
  7. LASIX [Concomitant]
     Dosage: UNKNOWN
     Route: 048
  8. PREVISCAN [Interacting]
     Route: 048
     Dates: end: 20060626
  9. PREVISCAN [Interacting]
     Route: 048
     Dates: start: 20060628, end: 20060702
  10. PREVISCAN [Interacting]
     Route: 048
     Dates: start: 20060703, end: 20060704
  11. PREVISCAN [Interacting]
     Route: 048
     Dates: start: 20060705, end: 20060712
  12. ATROVENT [Concomitant]
     Dosage: UNKNOWN
     Route: 055

REACTIONS (8)
  - DRUG INTERACTION [None]
  - HAEMORRHAGIC ANAEMIA [None]
  - HYPOVOLAEMIC SHOCK [None]
  - INJECTION SITE HAEMORRHAGE [None]
  - MUSCLE HAEMORRHAGE [None]
  - MUSCLE NECROSIS [None]
  - RENAL FAILURE CHRONIC [None]
  - RESPIRATORY DISTRESS [None]
